FAERS Safety Report 5805379-1 (Version None)
Quarter: 2008Q3

REPORT INFORMATION
  Report Type: 
  Country: None (occurrence: None)
  Receive Date: 20080708
  Receipt Date: 20080708
  Transmission Date: 20090109
  Serious: Yes (Other)
  Sender: FDA-Public Use
  Company Number: None

PATIENT
  Age: 35 Year
  Sex: Female
  Weight: 45.3597 kg

DRUGS (1)
  1. MEDERMA CREAM [Suspect]
     Indication: SCAR
     Dosage: BID TOPICAL
     Route: 061
     Dates: start: 20080514, end: 20080529

REACTIONS (3)
  - PAIN [None]
  - SKIN DISORDER [None]
  - STAPHYLOCOCCAL INFECTION [None]
